FAERS Safety Report 14191143 (Version 2)
Quarter: 2017Q4

REPORT INFORMATION
  Report Type: Spontaneous
  Country: BR (occurrence: BR)
  Receive Date: 20171115
  Receipt Date: 20171220
  Transmission Date: 20180321
  Serious: Yes (Death, Other)
  Sender: FDA-Public Use
  Company Number: BR-ASTELLAS-2017US047229

PATIENT
  Age: 31 Year
  Sex: Male

DRUGS (4)
  1. AMPHOTERICIN B, LIPOSOME [Suspect]
     Active Substance: AMPHOTERICIN B
     Route: 065
     Dates: start: 201212
  2. AMPHOTERICIN B, LIPOSOME [Suspect]
     Active Substance: AMPHOTERICIN B
     Indication: CRYPTOCOCCOSIS
     Route: 065
     Dates: start: 201209, end: 201211
  3. AMPHOTERICIN B, LIPOSOME [Suspect]
     Active Substance: AMPHOTERICIN B
     Route: 065
     Dates: start: 201302, end: 201307
  4. AMPHOTERICIN B, LIPOSOME [Suspect]
     Active Substance: AMPHOTERICIN B
     Route: 065
     Dates: start: 201310, end: 201311

REACTIONS (4)
  - Thrombocytopenia [Unknown]
  - Renal failure [Fatal]
  - Off label use [Fatal]
  - Drug ineffective [Fatal]

NARRATIVE: CASE EVENT DATE: 201211
